FAERS Safety Report 17870621 (Version 7)
Quarter: 2020Q3

REPORT INFORMATION
  Report Type: Report from Study
  Country: CA (occurrence: CA)
  Receive Date: 20200608
  Receipt Date: 20200807
  Transmission Date: 20201103
  Serious: Yes (Life-Threatening, Hospitalization)
  Sender: FDA-Public Use
  Company Number: CA-PFIZER INC-2020-07881

PATIENT
  Age: 66 Year
  Sex: Male
  Weight: 62.9 kg

DRUGS (29)
  1. FLUOROURACIL. [Suspect]
     Active Substance: FLUOROURACIL
     Indication: COLORECTAL CANCER METASTATIC
     Dosage: 2400 MG/M2, CYCLIC OVER 46?48 HRS, IV (VOLUME: 230ML), Q2W (PRELIMIN RECOMMENDED PHASE II DOSE (RP2D
     Route: 042
     Dates: start: 20200117, end: 20200329
  2. OXALIPLATIN. [Suspect]
     Active Substance: OXALIPLATIN
     Indication: COLORECTAL CANCER METASTATIC
     Dosage: 85 MG/M2, CYCLIC (VOLUME: 570ML), EVERY TWO WEEKS (PRELIMIN RECOMMENDED PHASE II DOSE (RP2D))
     Route: 042
     Dates: start: 20200117, end: 20200327
  3. PEMBROLIZUMAB. [Suspect]
     Active Substance: PEMBROLIZUMAB
     Indication: COLORECTAL CANCER METASTATIC
     Dosage: 200 MG, EVERY 3 WEEKS (VOL OF INFUSION: 100ML)
     Route: 042
     Dates: start: 20200117, end: 20200319
  4. NYSTATIN RINSE [Concomitant]
     Dosage: 5 ML
     Dates: start: 20200221
  5. FLUOROURACIL. [Suspect]
     Active Substance: FLUOROURACIL
     Dosage: PRELIMIN RECOMMENDED PHASE II DOSE (RP2D), 2400 MG/M2 OVER 46?48 HOURS, Q2W
     Route: 042
     Dates: start: 20200421, end: 20200423
  6. LEUCOVORIN. [Suspect]
     Active Substance: LEUCOVORIN
     Dosage: PRELIMINARY RECOMMENDED PHASE II DOSE (RP2D) DETERMINED IN COHORT B (CYCLE 6)
     Route: 042
     Dates: start: 20200714
  7. HYDROXYZINE HYDROCHLORIDE. [Concomitant]
     Active Substance: HYDROXYZINE HYDROCHLORIDE
     Dosage: 20 ML
     Dates: start: 20200207
  8. LOMOTIL [Concomitant]
     Active Substance: ATROPINE SULFATE\DIPHENOXYLATE HYDROCHLORIDE
     Dosage: 5 MG
     Dates: start: 20200224
  9. MAGNESIUM [Concomitant]
     Active Substance: MAGNESIUM
     Dosage: 250 MG
     Dates: start: 20200326
  10. BINIMETINIB [Suspect]
     Active Substance: BINIMETINIB
     Indication: COLORECTAL CANCER METASTATIC
     Dosage: 30 MG, 2X/DAY
     Route: 048
     Dates: start: 20200117, end: 20200318
  11. BINIMETINIB [Suspect]
     Active Substance: BINIMETINIB
     Dosage: 60 MG
     Route: 048
     Dates: start: 20200707
  12. OXALIPLATIN. [Suspect]
     Active Substance: OXALIPLATIN
     Dosage: 85 MG/M2, CYCLIC (Q2W) (PRELIMINARY RECOMMENDED PHASE II DOSE (RP2D))
     Route: 042
     Dates: start: 20200421, end: 20200421
  13. GRANISETRON [Concomitant]
     Active Substance: GRANISETRON
     Dosage: 1 MG, SOLUTION FOR INJECTION/INFUSION
     Dates: start: 20200117
  14. DEXAMETHASONE. [Concomitant]
     Active Substance: DEXAMETHASONE
     Dosage: 10 MG, SOLUTION FOR INJECTION/INFUSION
     Dates: start: 20200117
  15. TYLENOL [Concomitant]
     Active Substance: ACETAMINOPHEN
     Dosage: 1 DF
     Dates: start: 20200408, end: 20200524
  16. CETIRIZINE HYDROCHLORIDE. [Concomitant]
     Active Substance: CETIRIZINE HYDROCHLORIDE
     Dosage: 1 DF
     Dates: start: 20200408
  17. LEUCOVORIN. [Suspect]
     Active Substance: LEUCOVORIN
     Dosage: 400 MG/M2, CYCLIC  (Q2W) (PRELIMINARY RECOMMENDED PHASE II DOSE (RP2D))
     Route: 042
     Dates: start: 20200421, end: 20200421
  18. PEMBROLIZUMAB. [Suspect]
     Active Substance: PEMBROLIZUMAB
     Dosage: 200 MILLIGRAM, Q3W
     Route: 042
     Dates: start: 20200421, end: 20200421
  19. PEMBROLIZUMAB. [Suspect]
     Active Substance: PEMBROLIZUMAB
     Dosage: 200 MG, EVERY 3 WEEKS (Q3W) (C6D1)
     Route: 042
     Dates: start: 20200707
  20. FERROUS SULFATE. [Concomitant]
     Active Substance: FERROUS SULFATE
     Dosage: 300 MG
     Dates: start: 20191227
  21. NYSTATIN. [Concomitant]
     Active Substance: NYSTATIN
     Dosage: 20 ML
     Dates: start: 20200207
  22. ACETAMINOPHEN. [Concomitant]
     Active Substance: ACETAMINOPHEN
     Dosage: 650 MG
     Dates: start: 20200203
  23. OXALIPLATIN. [Suspect]
     Active Substance: OXALIPLATIN
     Dosage: PRELIMINARY RECOMMENDED PHASE II DOSE (RP2D) DETERMINED IN COHORT B (CYCLE 6)
     Route: 042
     Dates: start: 20200714
  24. HYDROCORTISONE. [Concomitant]
     Active Substance: HYDROCORTISONE
     Dosage: 20 ML
     Dates: start: 20200207
  25. BINIMETINIB [Suspect]
     Active Substance: BINIMETINIB
     Dosage: 30 MG, 2X/DAY
     Route: 048
     Dates: start: 20200319, end: 20200406
  26. FLUOROURACIL. [Suspect]
     Active Substance: FLUOROURACIL
     Dosage: PRELIMINARY RECOMMENDED PHASE II DOSE (RP2D) DETERMINED IN COHORT B (CYCLE 6)
     Route: 042
     Dates: start: 20200714
  27. LEUCOVORIN. [Suspect]
     Active Substance: LEUCOVORIN
     Indication: COLORECTAL CANCER METASTATIC
     Dosage: 400 MG/M2, CYCLIC (VOLUME: 340ML), Q2W (PRELIMIN RECOMMENDED PHASE II DOSE (RP2D))
     Route: 042
     Dates: start: 20200117, end: 20200327
  28. NYSTATIN. [Concomitant]
     Active Substance: NYSTATIN
     Dosage: 5 ML
     Dates: start: 20200221
  29. LIDOCAINE. [Concomitant]
     Active Substance: LIDOCAINE
     Dosage: 1 DF
     Dates: start: 20200207

REACTIONS (3)
  - Gastrointestinal anastomotic leak [Recovered/Resolved]
  - Small intestinal obstruction [Recovered/Resolved]
  - Large intestine perforation [Recovered/Resolved]

NARRATIVE: CASE EVENT DATE: 20200424
